FAERS Safety Report 6884883-1 (Version None)
Quarter: 2010Q3

REPORT INFORMATION
  Report Type: 
  Country: None (occurrence: None)
  Receive Date: 20100729
  Receipt Date: 20100209
  Transmission Date: 20110219
  Serious: Yes (Other)
  Sender: FDA-Public Use
  Company Number: ES-ABBOTT-10P-144-0660030-00

PATIENT
  Age: 9 Year
  Sex: Female

DRUGS (1)
  1. AKINETON [Suspect]
     Indication: DYSTONIA
     Route: 042
     Dates: end: 20090101

REACTIONS (1)
  - ANTICHOLINERGIC SYNDROME [None]
